FAERS Safety Report 8001004-2 (Version None)
Quarter: 2011Q4

REPORT INFORMATION
  Report Type: 
  Country: None (occurrence: None)
  Receive Date: 20111222
  Receipt Date: 20110317
  Transmission Date: 20120403
  Serious: No
  Sender: FDA-Public Use
  Company Number: US-GLAXOSMITHKLINE-A0918670A

PATIENT
  Age: 5 Year
  Sex: Male

DRUGS (2)
  1. FLONASE [Suspect]
     Indication: RHINITIS ALLERGIC
     Route: 055
     Dates: start: 20110309, end: 20110315
  2. CEFPROZIL [Concomitant]

REACTIONS (1)
  - ALOPECIA [None]
